FAERS Safety Report 9837815 (Version 1)
Quarter: 2013Q4

REPORT INFORMATION
  Report Type: Spontaneous
  Country: US (occurrence: None)
  Receive Date: 20131205
  Receipt Date: 20131205
  Transmission Date: 20140711
  Serious: No
  Sender: FDA-Public Use
  Company Number: 163-POMAL-13101591

PATIENT
  Age: 78 Year
  Sex: Female

DRUGS (8)
  1. POMALYST (POMALIDOMIDE) (4 MILLIGRAM, CAPSULES) [Suspect]
     Indication: PLASMA CELL MYELOMA
     Dosage: 3MG, 21 IN 28 D, PO
     Route: 048
     Dates: start: 20130718
  2. FLUVIRIN (INFLUENZA VIRUS VACCINE POLYVALENT) [Concomitant]
  3. HYDROCODONE/ACETAMINOPHEN (REMEDEINE) [Concomitant]
  4. ACYCLOVIR (ACICLOVIR) (CAPSULES) [Concomitant]
  5. MULTIVITAMINS (MULTIVITAMINS) (TABLETS) [Concomitant]
  6. DEXAMETHASONE (DEXAMETHASONE) (TABLETS) [Concomitant]
  7. ALKERAN (MELPHALAN) (TABLETS) [Concomitant]
  8. MORPHINE SULFATE (MORPHINE SULFATE) (TABLET) [Concomitant]

REACTIONS (1)
  - Neutropenia [None]
